FAERS Safety Report 5682389-9 (Version None)
Quarter: 2008Q1

REPORT INFORMATION
  Report Type: 
  Country: None (occurrence: None)
  Receive Date: 20080327
  Receipt Date: 20080319
  Transmission Date: 20080703
  Serious: Yes (Other)
  Sender: FDA-Public Use
  Company Number: US-ROCHE-553996

PATIENT
  Age: 67 Year
  Sex: Female

DRUGS (4)
  1. BONIVA [Suspect]
     Indication: OSTEOPOROSIS
     Route: 048
     Dates: start: 20070701, end: 20080101
  2. NEXIUM [Concomitant]
  3. COLESTIPOL HYDROCHLORIDE [Concomitant]
  4. FEMARA [Concomitant]

REACTIONS (3)
  - CATARACT OPERATION [None]
  - DIARRHOEA [None]
  - INFLUENZA LIKE ILLNESS [None]
